FAERS Safety Report 20130350 (Version 1)
Quarter: 2021Q4

REPORT INFORMATION
  Report Type: Spontaneous
  Country: US (occurrence: US)
  Receive Date: 20211130
  Receipt Date: 20211130
  Transmission Date: 20220303
  Serious: No
  Sender: FDA-Public Use
  Company Number: US-GALDERMA-US2021018204

PATIENT

DRUGS (5)
  1. PROACTIV MD ADAPALENE ACNE TREATMENT [Suspect]
     Active Substance: ADAPALENE
     Indication: Product used for unknown indication
     Dosage: 1 DOSAGE FORM, QD, ONCE AT NIGHT
     Route: 061
     Dates: start: 202007
  2. PROACTIV MD DAILY OIL CONTROL SPF 30 [Suspect]
     Active Substance: AVOBENZONE\OCTISALATE\OCTOCRYLENE
     Indication: Product used for unknown indication
     Dosage: 1 DOSAGE FORM, BID, TWICE DAILY, CUTANEOUS SOLUTION
     Route: 061
     Dates: start: 202007
  3. Proactiv MD Ultra Gentle Cleanser [Concomitant]
     Indication: Product used for unknown indication
     Dosage: 1 DOSAGE FORM, BID, TWICE DAILY
     Route: 061
     Dates: start: 202007
  4. PROACTIV DEEP CLEANSING BODY WASH [Concomitant]
     Active Substance: SALICYLIC ACID
     Indication: Product used for unknown indication
     Dosage: 1 DOSAGE FORM, BID, TWICE DAILY
     Route: 061
     Dates: start: 202007
  5. Proactiv Redness Relief Serum [Concomitant]
     Indication: Product used for unknown indication
     Dosage: 1 DOSAGE FORM, BID, TWICE DAILY
     Route: 061
     Dates: start: 202007

REACTIONS (4)
  - Eye swelling [Not Recovered/Not Resolved]
  - Ocular hyperaemia [Not Recovered/Not Resolved]
  - Periorbital swelling [Not Recovered/Not Resolved]
  - Drug ineffective [Not Recovered/Not Resolved]

NARRATIVE: CASE EVENT DATE: 20200701
